FAERS Safety Report 7432261-9 (Version None)
Quarter: 2011Q2

REPORT INFORMATION
  Report Type: 
  Country: None (occurrence: None)
  Receive Date: 20110415
  Receipt Date: 20110406
  Transmission Date: 20111010
  Serious: Yes (Other)
  Sender: FDA-Public Use
  Company Number: USA/USA/11/0017891

PATIENT
  Age: 89 Year
  Sex: Female
  Weight: 68.0396 kg

DRUGS (6)
  1. CARDURA [Concomitant]
  2. ZOCOR [Concomitant]
  3. SECTRAL [Suspect]
     Indication: HYPERTENSION
     Dosage: 200 MG, 2 IN 1 D, ORAL
     Route: 048
     Dates: start: 20090101, end: 20110301
  4. ACTINIL (RISEDRONATE SODIUM) [Concomitant]
  5. LOTRIL (CLOTRIMAZOLE) [Concomitant]
  6. SYNTHROID [Concomitant]

REACTIONS (5)
  - ABDOMINAL PAIN UPPER [None]
  - DRUG INEFFECTIVE [None]
  - PRODUCT QUALITY ISSUE [None]
  - HYPERTENSION [None]
  - HEADACHE [None]
